FAERS Safety Report 16518551 (Version 1)
Quarter: 2019Q3

REPORT INFORMATION
  Report Type: Spontaneous
  Country: US (occurrence: US)
  Receive Date: 20190702
  Receipt Date: 20190702
  Transmission Date: 20191004
  Serious: No
  Sender: FDA-Public Use
  Company Number: US-GALDERMA-US19003502

PATIENT
  Sex: Female

DRUGS (9)
  1. PROACTIV GENTLE FORMULA CLARIFYING DAY LOTION [Concomitant]
     Route: 061
  2. PROACTIV GENTLE FORMULA CLARIFYING CLEANSER [Concomitant]
     Active Substance: SALICYLIC ACID
     Route: 061
  3. PROACTIV GENTLE FORMULA CLARIFYING NIGHT LOTION [Concomitant]
     Route: 061
  4. PROACTIV MD DAILY OIL CONTROL SPF 30 [Suspect]
     Active Substance: AVOBENZONE\OCTISALATE\OCTOCRYLENE
     Indication: PRODUCT USED FOR UNKNOWN INDICATION
     Route: 061
  5. PROACTIV SKIN PURIFYING MASK [Concomitant]
     Active Substance: SULFUR
     Route: 061
  6. PROACTIV MD ADAPALENE ACNE TREATMENT [Suspect]
     Active Substance: ADAPALENE
     Indication: PRODUCT USED FOR UNKNOWN INDICATION
     Dosage: 0.1%
     Route: 061
  7. PROACTIV MD DEEP CLEANSING FACE WASH [Concomitant]
     Active Substance: COSMETICS
     Route: 061
  8. PROACTIV GREEN TEA MOISTURIZER [Concomitant]
     Active Substance: COSMETICS
     Route: 061
  9. PROACTIV GENTLE FORMULA CLARIFYING TONER [Concomitant]
     Route: 061

REACTIONS (4)
  - Acne [Unknown]
  - Erythema [Unknown]
  - Skin tightness [Unknown]
  - Pruritus [Unknown]
